FAERS Safety Report 9862404 (Version 1)
Quarter: 2014Q1

REPORT INFORMATION
  Report Type: Report from Study
  Country: US (occurrence: US)
  Receive Date: 20140203
  Receipt Date: 20140203
  Transmission Date: 20141002
  Serious: Yes (Death, Life-Threatening, Disabling, Other)
  Sender: FDA-Public Use
  Company Number: US-009507513-1401USA013500

PATIENT
  Age: 50 Year
  Sex: Male
  Weight: 112.7 kg

DRUGS (9)
  1. COZAAR [Suspect]
     Dosage: UNK
     Route: 048
     Dates: start: 19961226, end: 20010210
  2. 70/30 INSULIN [Concomitant]
     Indication: DIABETES MELLITUS
     Dosage: 60 U
     Route: 058
  3. NORVASC [Concomitant]
     Indication: HYPERTENSION
     Dosage: UNK
     Route: 048
  4. HYTRIN [Concomitant]
     Indication: HYPERTENSION
     Dosage: UNK
     Route: 048
  5. KCL [Concomitant]
     Indication: HYPOKALAEMIA
     Dosage: UNK
     Route: 048
  6. ZANTAC [Concomitant]
     Indication: DYSPEPSIA
     Dosage: UNK
     Route: 048
  7. TRAZODONE HYDROCHLORIDE [Concomitant]
     Indication: DEPRESSION
     Dosage: UNK
     Route: 048
  8. QUININE [Concomitant]
     Indication: MUSCLE SPASMS
     Dosage: UNK
     Route: 048
  9. ZINC SULFATE [Concomitant]
     Dosage: UNK
     Route: 048

REACTIONS (2)
  - Cardiac arrest [Fatal]
  - Sudden death [Fatal]
